FAERS Safety Report 16613253 (Version 1)
Quarter: 2019Q3

REPORT INFORMATION
  Report Type: Spontaneous
  Country: US (occurrence: US)
  Receive Date: 20190722
  Receipt Date: 20190722
  Transmission Date: 20191004
  Serious: Yes (Other)
  Sender: FDA-Public Use
  Company Number: PHHY2019US166642

PATIENT
  Age: 24 Year
  Sex: Female

DRUGS (16)
  1. CLINDAMYCIN. [Suspect]
     Active Substance: CLINDAMYCIN
     Indication: BACTEROIDES INFECTION
  2. CLINDAMYCIN. [Suspect]
     Active Substance: CLINDAMYCIN
     Indication: STAPHYLOCOCCAL INFECTION
     Route: 065
  3. AMOXICILLIN. [Suspect]
     Active Substance: AMOXICILLIN
     Indication: STAPHYLOCOCCAL INFECTION
     Route: 065
  4. MEROPENEM. [Suspect]
     Active Substance: MEROPENEM
     Indication: STAPHYLOCOCCAL INFECTION
     Route: 065
  5. GENTAMYCIN [Suspect]
     Active Substance: GENTAMICIN
     Indication: BACTEROIDES INFECTION
  6. AZITHROMYCIN ANHYDROUS. [Suspect]
     Active Substance: AZITHROMYCIN ANHYDROUS
     Indication: STAPHYLOCOCCAL INFECTION
     Route: 065
  7. METRONIDAZOLE. [Suspect]
     Active Substance: METRONIDAZOLE
     Indication: STAPHYLOCOCCAL INFECTION
     Route: 065
  8. AMOXICILLIN. [Suspect]
     Active Substance: AMOXICILLIN
     Indication: BACTEROIDES INFECTION
  9. MEROPENEM. [Suspect]
     Active Substance: MEROPENEM
     Indication: BACTEROIDES INFECTION
  10. PIPERACILLIN AND TAZOBACTAM [Suspect]
     Active Substance: PIPERACILLIN SODIUM\TAZOBACTAM SODIUM
     Indication: STAPHYLOCOCCAL INFECTION
     Route: 065
  11. PIPERACILLIN AND TAZOBACTAM [Suspect]
     Active Substance: PIPERACILLIN SODIUM\TAZOBACTAM SODIUM
     Indication: BACTEROIDES INFECTION
  12. METRONIDAZOLE. [Suspect]
     Active Substance: METRONIDAZOLE
     Indication: BACTEROIDES INFECTION
  13. VANCOMYCIN [Suspect]
     Active Substance: VANCOMYCIN
     Indication: STAPHYLOCOCCAL INFECTION
     Route: 065
  14. VANCOMYCIN [Suspect]
     Active Substance: VANCOMYCIN
     Indication: BACTEROIDES INFECTION
  15. AZITHROMYCIN ANHYDROUS. [Suspect]
     Active Substance: AZITHROMYCIN ANHYDROUS
     Indication: BACTEROIDES INFECTION
  16. GENTAMYCIN [Suspect]
     Active Substance: GENTAMICIN
     Indication: STAPHYLOCOCCAL INFECTION
     Route: 065

REACTIONS (2)
  - Drug reaction with eosinophilia and systemic symptoms [Unknown]
  - Product use in unapproved indication [Unknown]
